FAERS Safety Report 5456452-1 (Version None)
Quarter: 2007Q3

REPORT INFORMATION
  Report Type: 
  Country: None (occurrence: None)
  Receive Date: 20070918
  Receipt Date: 20070913
  Transmission Date: 20080115
  Serious: Yes (Other)
  Sender: FDA-Public Use
  Company Number: ZA-ABBOTT-07P-143-0416958-00

PATIENT
  Age: 59 Year
  Sex: Female

DRUGS (4)
  1. EPILIM [Suspect]
     Indication: BIPOLAR DISORDER
     Route: 048
  2. EPILIM [Suspect]
     Route: 048
  3. CITALOPRAM [Concomitant]
     Indication: BIPOLAR DISORDER
     Route: 048
  4. CITALOPRAM [Concomitant]
     Route: 048

REACTIONS (2)
  - DELIRIUM [None]
  - DRUG TOXICITY [None]
